FAERS Safety Report 6147162-6 (Version None)
Quarter: 2009Q2

REPORT INFORMATION
  Report Type: 
  Country: None (occurrence: None)
  Receive Date: 20090406
  Receipt Date: 20090324
  Transmission Date: 20091009
  Serious: Yes (Hospitalization)
  Sender: FDA-Public Use
  Company Number: CLOF-10499

PATIENT
  Age: 70 Year
  Sex: Female
  Weight: 90.8 kg

DRUGS (8)
  1. CLOFARABINE (CLOFARABINE) SOLUTION FOR INFUSION [Suspect]
     Indication: ACUTE MYELOID LEUKAEMIA
     Dosage: 30 MG/M2, QDX5, INTRAVENOUS; 20 MG/M2, QDX5, INTRAVENOUS
     Route: 042
     Dates: start: 20070213, end: 20070217
  2. CLOFARABINE (CLOFARABINE) SOLUTION FOR INFUSION [Suspect]
     Indication: ACUTE MYELOID LEUKAEMIA
     Dosage: 30 MG/M2, QDX5, INTRAVENOUS; 20 MG/M2, QDX5, INTRAVENOUS
     Route: 042
     Dates: start: 20070402, end: 20070406
  3. CLOFARABINE (CLOFARABINE) SOLUTION FOR INFUSION [Suspect]
  4. TIGECYCLINE (TIGECYCLINE) [Concomitant]
  5. DIFLUCAN [Concomitant]
  6. VANCOMYCIN [Concomitant]
  7. VORICONAZOLE (VORICONAZOLE) [Concomitant]
  8. AZITHROMYCIN [Concomitant]

REACTIONS (12)
  - BLOOD ALKALINE PHOSPHATASE INCREASED [None]
  - BLOOD LACTATE DEHYDROGENASE INCREASED [None]
  - ENTEROCOCCAL SEPSIS [None]
  - FEBRILE NEUTROPENIA [None]
  - MARROW HYPERPLASIA [None]
  - PNEUMONIA [None]
  - PULMONARY HAEMORRHAGE [None]
  - PULMONARY HYPERTENSION [None]
  - PULMONARY OEDEMA [None]
  - RESPIRATORY DISTRESS [None]
  - RESPIRATORY MONILIASIS [None]
  - TRANSFUSION-RELATED ACUTE LUNG INJURY [None]
